FAERS Safety Report 12420960 (Version 2)
Quarter: 2016Q2

REPORT INFORMATION
  Report Type: Spontaneous
  Country: US (occurrence: US)
  Receive Date: 20160531
  Receipt Date: 20160607
  Transmission Date: 20160815
  Serious: Yes (Death, Hospitalization, Other)
  Sender: FDA-Public Use
  Company Number: US-JNJFOC-20160521093

PATIENT
  Age: 73 Year
  Sex: Male
  Weight: 108 kg

DRUGS (9)
  1. VFEND [Suspect]
     Active Substance: VORICONAZOLE
     Indication: PNEUMONIA FUNGAL
     Route: 065
     Dates: start: 201602, end: 20160331
  2. VFEND [Suspect]
     Active Substance: VORICONAZOLE
     Indication: PULMONARY MYCOSIS
     Route: 065
     Dates: start: 201602, end: 20160331
  3. FLUCONAZOLE. [Suspect]
     Active Substance: FLUCONAZOLE
     Indication: ACUTE MYELOID LEUKAEMIA
     Route: 065
  4. VFEND [Suspect]
     Active Substance: VORICONAZOLE
     Indication: PNEUMONIA FUNGAL
     Route: 065
     Dates: start: 20160325, end: 20160330
  5. LEVOFLOXACIN. [Suspect]
     Active Substance: LEVOFLOXACIN
     Indication: NEUTROPENIA
     Route: 065
  6. VFEND [Suspect]
     Active Substance: VORICONAZOLE
     Indication: PULMONARY MYCOSIS
     Route: 065
     Dates: start: 20160325, end: 20160330
  7. VFEND [Suspect]
     Active Substance: VORICONAZOLE
     Indication: PNEUMONIA FUNGAL
     Route: 065
     Dates: start: 201507, end: 201602
  8. ACICLOVIR [Suspect]
     Active Substance: ACYCLOVIR
     Indication: NEUTROPENIA
     Route: 065
  9. VFEND [Suspect]
     Active Substance: VORICONAZOLE
     Indication: PULMONARY MYCOSIS
     Route: 065
     Dates: start: 201507, end: 201602

REACTIONS (6)
  - Off label use [Fatal]
  - Oncologic complication [Fatal]
  - Pneumonia [Fatal]
  - Acute myeloid leukaemia [Fatal]
  - Cerebrovascular accident [Fatal]
  - Product use issue [Fatal]

NARRATIVE: CASE EVENT DATE: 20160318
